FAERS Safety Report 18059153 (Version 1)
Quarter: 2020Q3

REPORT INFORMATION
  Report Type: Spontaneous
  Country: US (occurrence: US)
  Receive Date: 20200723
  Receipt Date: 20200723
  Transmission Date: 20201103
  Serious: Yes (Other)
  Sender: FDA-Public Use
  Company Number: US-SUN PHARMACEUTICAL INDUSTRIES LTD-2020R1-254343

PATIENT
  Age: 36 Year
  Sex: Female

DRUGS (2)
  1. PREDNISONE. [Suspect]
     Active Substance: PREDNISONE
     Indication: PEMPHIGUS
     Dosage: UNK
     Route: 061
  2. MYCOPHENOLATE [Suspect]
     Active Substance: MYCOPHENOLIC ACID
     Indication: PEMPHIGUS
     Dosage: UNK
     Route: 065

REACTIONS (2)
  - Therapeutic product effect incomplete [Unknown]
  - Exposure via breast milk [Unknown]
